FAERS Safety Report 18002055 (Version 3)
Quarter: 2020Q3

REPORT INFORMATION
  Report Type: Spontaneous
  Country: US (occurrence: US)
  Receive Date: 20200709
  Receipt Date: 20200806
  Transmission Date: 20201103
  Serious: Yes (Death, Hospitalization, Other)
  Sender: FDA-Public Use
  Company Number: US-TEVA-2020-US-1799409

PATIENT
  Age: 37 Year
  Sex: Female
  Weight: 104.3 kg

DRUGS (10)
  1. CLONAZEPAM. [Suspect]
     Active Substance: CLONAZEPAM
     Route: 065
  2. CYCLOBENZAPRINE. [Suspect]
     Active Substance: CYCLOBENZAPRINE
     Route: 065
  3. PSEUDOEPHEDRINE. [Suspect]
     Active Substance: PSEUDOEPHEDRINE HYDROCHLORIDE
     Route: 065
  4. TRAMADOL. [Suspect]
     Active Substance: TRAMADOL
     Route: 065
  5. HYDROCODONE [Suspect]
     Active Substance: HYDROCODONE
     Route: 065
  6. MIRTAZAPINE. [Suspect]
     Active Substance: MIRTAZAPINE
     Route: 065
  7. CAFFEINE. [Suspect]
     Active Substance: CAFFEINE
     Route: 065
  8. DOXYLAMINE [Suspect]
     Active Substance: DOXYLAMINE
     Route: 065
  9. DIPHENHYDRAMINE. [Suspect]
     Active Substance: DIPHENHYDRAMINE
     Route: 065
  10. FLUVOXAMINE [Suspect]
     Active Substance: FLUVOXAMINE
     Route: 065

REACTIONS (8)
  - Unresponsive to stimuli [Unknown]
  - Pulmonary congestion [Unknown]
  - Pulmonary oedema [Unknown]
  - Toxicity to various agents [Fatal]
  - Depression [Unknown]
  - Lower respiratory tract infection [Unknown]
  - Overdose [Unknown]
  - Pneumonia [Unknown]
